FAERS Safety Report 26135964 (Version 1)
Quarter: 2025Q4

REPORT INFORMATION
  Report Type: Spontaneous
  Country: US (occurrence: None)
  Receive Date: 20251209
  Receipt Date: 20251209
  Transmission Date: 20260117
  Serious: No
  Sender: FDA-CTU
  Company Number: None

PATIENT
  Age: 37 Year
  Sex: Female
  Weight: 84 kg

DRUGS (1)
  1. TIRZEPATIDE [Suspect]
     Active Substance: TIRZEPATIDE
     Indication: Weight decreased
     Dosage: FREQUENCY : QWEEK
     Route: 058
     Dates: start: 20250218, end: 20250528

REACTIONS (3)
  - Abdominal pain [None]
  - Constipation [None]
  - Impaired gastric emptying [None]

NARRATIVE: CASE EVENT DATE: 20250528
